FAERS Safety Report 9131124 (Version 2)
Quarter: 2013Q2

REPORT INFORMATION
  Report Type: Spontaneous
  Country: US (occurrence: US)
  Receive Date: 20130301
  Receipt Date: 20130416
  Transmission Date: 20140414
  Serious: Yes (Other)
  Sender: FDA-Public Use
  Company Number: US-SANOFI-AVENTIS-2013SA019298

PATIENT
  Sex: 0

DRUGS (2)
  1. MULTAQ [Suspect]
     Route: 065
  2. MULTAQ [Suspect]
     Route: 065

REACTIONS (2)
  - Respiratory distress [Unknown]
  - Product quality issue [Unknown]
